FAERS Safety Report 16479804 (Version 1)
Quarter: 2019Q2

REPORT INFORMATION
  Report Type: Spontaneous
  Country: FR (occurrence: FR)
  Receive Date: 20190626
  Receipt Date: 20190626
  Transmission Date: 20190711
  Serious: Yes (Hospitalization)
  Sender: FDA-Public Use
  Company Number: FR-MYLANLABS-2019M1057604

PATIENT
  Age: 34 Year
  Sex: Male

DRUGS (1)
  1. CARBAMAZEPINE. [Suspect]
     Active Substance: CARBAMAZEPINE
     Indication: STATUS EPILEPTICUS
     Dosage: UNK
     Route: 065

REACTIONS (18)
  - Interstitial lung disease [Recovering/Resolving]
  - Tachycardia [Recovering/Resolving]
  - Hyperleukocytosis [Recovering/Resolving]
  - Dyspnoea [Recovering/Resolving]
  - Cholestasis [Recovering/Resolving]
  - Lymphadenopathy [Recovering/Resolving]
  - Thrombocytopenia [Recovering/Resolving]
  - Eosinophilia [Recovering/Resolving]
  - Hyperhidrosis [Recovering/Resolving]
  - Cell death [Recovering/Resolving]
  - Cytomegalovirus test positive [Recovered/Resolved]
  - Pyrexia [Recovering/Resolving]
  - Acute kidney injury [Recovering/Resolving]
  - Cyanosis [Recovering/Resolving]
  - Drug reaction with eosinophilia and systemic symptoms [Recovered/Resolved]
  - Respiratory distress [Recovering/Resolving]
  - Dermatitis exfoliative generalised [Recovering/Resolving]
  - Rash maculo-papular [Recovering/Resolving]
